FAERS Safety Report 6780845-3 (Version None)
Quarter: 2010Q2

REPORT INFORMATION
  Report Type: 
  Country: None (occurrence: None)
  Receive Date: 20100621
  Receipt Date: 20100608
  Transmission Date: 20101027
  Serious: Yes (Hospitalization, Other)
  Sender: FDA-Public Use
  Company Number: US-BAYER-201025161NA

PATIENT
  Age: 39 Year
  Sex: Female

DRUGS (1)
  1. MIRENA [Suspect]
     Indication: CONTRACEPTION
     Dosage: CONSTINUOUS
     Route: 015
     Dates: start: 20080401, end: 20100603

REACTIONS (3)
  - CERVIX DISORDER [None]
  - DEVICE EXPULSION [None]
  - UTERINE DISORDER [None]
